FAERS Safety Report 8108745-7 (Version None)
Quarter: 2012Q1

REPORT INFORMATION
  Report Type: 
  Country: None (occurrence: None)
  Receive Date: 20120202
  Receipt Date: 20120125
  Transmission Date: 20120608
  Serious: Yes (Hospitalization)
  Sender: FDA-Public Use
  Company Number: PHHY2012JP006680

PATIENT
  Age: 72 Year
  Sex: Female

DRUGS (6)
  1. DISOPYRAMIDE [Suspect]
     Indication: ATRIAL FIBRILLATION
     Dosage: 150 MG, DAILY
  2. WARFARIN SODIUM [Concomitant]
     Indication: ATRIAL FIBRILLATION
     Dosage: 2 MG, DAILY
  3. AMLODIPINE BESYLATE [Concomitant]
     Indication: HYPERTENSION
     Dosage: 5 MG, PER DAY
  4. VERAPAMIL [Concomitant]
     Indication: ATRIAL FIBRILLATION
     Dosage: 120 MG, DAILY
  5. CALCIUM CARBONATE [Concomitant]
     Indication: HYPERPHOSPHATAEMIA
  6. CANDESARTAN CILEXETIL [Concomitant]
     Indication: HYPERTENSION
     Dosage: 8 MG, DAILY

REACTIONS (4)
  - MALAISE [None]
  - DEPRESSED LEVEL OF CONSCIOUSNESS [None]
  - DYSARTHRIA [None]
  - HYPOGLYCAEMIA [None]
